FAERS Safety Report 14380118 (Version 11)
Quarter: 2022Q2

REPORT INFORMATION
  Report Type: Spontaneous
  Country: ES (occurrence: ES)
  Receive Date: 20180112
  Receipt Date: 20220630
  Transmission Date: 20220720
  Serious: Yes (Hospitalization, Disabling, Other)
  Sender: FDA-Public Use
  Company Number: ES-GUERBET-ES-20170012

PATIENT
  Age: 45 Year
  Sex: Female
  Weight: 44 kg

DRUGS (1)
  1. DOTAREM [Suspect]
     Active Substance: GADOTERATE MEGLUMINE
     Indication: Magnetic resonance imaging
     Dosage: 1 ML/10 KG
     Route: 042
     Dates: start: 20160530, end: 20160530

REACTIONS (49)
  - Paraesthesia [Not Recovered/Not Resolved]
  - Angioedema [Not Recovered/Not Resolved]
  - Face oedema [Unknown]
  - Localised oedema [Not Recovered/Not Resolved]
  - Flushing [Not Recovered/Not Resolved]
  - Facial paralysis [Not Recovered/Not Resolved]
  - Cutaneous vasculitis [Unknown]
  - Pain [Not Recovered/Not Resolved]
  - Headache [Not Recovered/Not Resolved]
  - Deafness [Not Recovered/Not Resolved]
  - Tinnitus [Unknown]
  - Blindness [Not Recovered/Not Resolved]
  - Dizziness [Unknown]
  - Gait disturbance [Not Recovered/Not Resolved]
  - Bronchospasm [Unknown]
  - Cough [Unknown]
  - Dyspnoea [Unknown]
  - Dysphagia [Unknown]
  - Dysphonia [Unknown]
  - Vomiting [Unknown]
  - Nausea [Unknown]
  - Drooling [Unknown]
  - Hypokalaemia [Recovered/Resolved]
  - Hypoaesthesia [Unknown]
  - Limb injury [Not Recovered/Not Resolved]
  - Skin lesion [Not Recovered/Not Resolved]
  - Limb injury [Not Recovered/Not Resolved]
  - Limb injury [Not Recovered/Not Resolved]
  - Peripheral swelling [Unknown]
  - Tremor [Unknown]
  - Muscle spasms [Unknown]
  - Cyanosis [Unknown]
  - Stenosis [Unknown]
  - Papule [Unknown]
  - Eczema [Unknown]
  - Dysuria [Unknown]
  - Oedema genital [Unknown]
  - Chills [Unknown]
  - Feeling cold [Unknown]
  - Feeling hot [Unknown]
  - Blood pressure increased [Not Recovered/Not Resolved]
  - Vasodilatation [Unknown]
  - Blood pressure decreased [Unknown]
  - Angiopathy [Unknown]
  - Hypertrophy [Unknown]
  - Insomnia [Unknown]
  - General physical health deterioration [Unknown]
  - Adverse food reaction [Unknown]
  - Tongue discolouration [Unknown]

NARRATIVE: CASE EVENT DATE: 20160601
